FAERS Safety Report 10195021 (Version 1)
Quarter: 2014Q2

REPORT INFORMATION
  Report Type: Report from Study
  Country: US (occurrence: US)
  Receive Date: 20140526
  Receipt Date: 20140526
  Transmission Date: 20141212
  Serious: Yes (Hospitalization, Other)
  Sender: FDA-Public Use
  Company Number: PHEH2014US010240

PATIENT
  Sex: Female

DRUGS (13)
  1. AFINITOR [Suspect]
     Indication: ACUTE MYELOID LEUKAEMIA
     Dosage: 10 MG, QD
     Route: 048
  2. SILDENAFIL [Concomitant]
     Indication: PULMONARY HYPERTENSION
     Dosage: 20 MG, BID
     Route: 048
  3. LASIX [Concomitant]
     Dosage: 20 MG, QD
  4. TRILEPTAL [Concomitant]
     Indication: CONVULSION
     Dosage: 150 MG, BID
  5. LYRICA [Concomitant]
     Indication: NEUROPATHY PERIPHERAL
     Dosage: 75 MG, BID
  6. VITAMIN D [Concomitant]
     Dosage: 2000 IU, QD
  7. MIRTAZAPINE [Concomitant]
     Indication: ANXIETY
     Dosage: 30 MG, QD
  8. MIRTAZAPINE [Concomitant]
     Indication: SLEEP DISORDER
  9. SINGULAIR [Concomitant]
     Indication: ASTHMA
     Dosage: 10 MG, QD
  10. ADVAIR DISKUS [Concomitant]
  11. XOPENEX [Concomitant]
     Route: 055
  12. DIOVAN [Concomitant]
     Dosage: 40 MG, QD
  13. ATIVAN [Concomitant]

REACTIONS (5)
  - Hyperventilation [Recovered/Resolved]
  - Oxygen saturation decreased [Recovered/Resolved]
  - Anxiety [Recovered/Resolved]
  - Bronchospasm [Recovered/Resolved]
  - Dyspnoea [Recovered/Resolved]
